FAERS Safety Report 10075697 (Version 2)
Quarter: 2014Q2

REPORT INFORMATION
  Report Type: Spontaneous
  Country: US (occurrence: US)
  Receive Date: 20140414
  Receipt Date: 20140418
  Transmission Date: 20141212
  Serious: No
  Sender: FDA-Public Use
  Company Number: US-009507513-1404USA004202

PATIENT
  Age: 21 Year
  Sex: Female
  Weight: 47.17 kg

DRUGS (2)
  1. NUVARING [Suspect]
     Indication: CONTRACEPTION
     Dosage: 1 RING 4 WEEKS
     Route: 067
     Dates: start: 20140203
  2. NUVARING [Suspect]
     Dosage: 1 RING 4 WEEKS
     Route: 067
     Dates: start: 20140203

REACTIONS (3)
  - Vaginal discharge [Unknown]
  - Headache [Unknown]
  - Incorrect drug administration duration [Unknown]
